FAERS Safety Report 25552940 (Version 1)
Quarter: 2025Q3

REPORT INFORMATION
  Report Type: Spontaneous
  Country: US (occurrence: US)
  Receive Date: 20250715
  Receipt Date: 20250715
  Transmission Date: 20251020
  Serious: No
  Sender: ELI LILLY AND COMPANY
  Company Number: US-ELI_LILLY_AND_COMPANY-US202507011222

PATIENT
  Sex: Female

DRUGS (1)
  1. ZEPBOUND [Suspect]
     Active Substance: TIRZEPATIDE
     Indication: Product used for unknown indication
     Route: 042
     Dates: start: 20250704

REACTIONS (4)
  - Incorrect route of product administration [Unknown]
  - Dizziness [Unknown]
  - Heart rate increased [Unknown]
  - Nausea [Unknown]
